FAERS Safety Report 10549261 (Version 2)
Quarter: 2014Q4

REPORT INFORMATION
  Report Type: Spontaneous
  Country: FR (occurrence: FR)
  Receive Date: 20141028
  Receipt Date: 20141028
  Transmission Date: 20150529
  Serious: Yes (Other)
  Sender: FDA-Public Use
  Company Number: FR-JNJFOC-20140926832

PATIENT
  Sex: Male
  Weight: 47 kg

DRUGS (9)
  1. TERCIAN [Suspect]
     Active Substance: CYAMEMAZINE
     Indication: ANXIETY
     Dosage: 25MG; PER OS, HALF DOSE 3 TIMES DAILY
     Route: 065
     Dates: start: 201011
  2. TERCIAN [Suspect]
     Active Substance: CYAMEMAZINE
     Indication: ABNORMAL BEHAVIOUR
     Dosage: 25MG; PER OS, HALF DOSE 3 TIMES DAILY
     Route: 065
     Dates: start: 201011
  3. RISPERDAL [Suspect]
     Active Substance: RISPERIDONE
     Indication: ABNORMAL BEHAVIOUR
     Route: 048
     Dates: start: 201406
  4. RISPERDAL [Suspect]
     Active Substance: RISPERIDONE
     Indication: ABNORMAL BEHAVIOUR
     Route: 048
     Dates: start: 201103
  5. TERCIAN [Suspect]
     Active Substance: CYAMEMAZINE
     Indication: AGGRESSION
     Dosage: 25MG; PER OS, HALF DOSE 3 TIMES DAILY
     Route: 065
     Dates: start: 201011
  6. RISPERDAL [Suspect]
     Active Substance: RISPERIDONE
     Indication: HALLUCINATION
     Route: 048
     Dates: start: 201103
  7. RISPERDAL [Suspect]
     Active Substance: RISPERIDONE
     Indication: AGGRESSION
     Route: 048
     Dates: start: 201406
  8. RISPERDAL [Suspect]
     Active Substance: RISPERIDONE
     Indication: HALLUCINATION
     Route: 048
     Dates: start: 201406
  9. RISPERDAL [Suspect]
     Active Substance: RISPERIDONE
     Indication: AGGRESSION
     Route: 048
     Dates: start: 201103

REACTIONS (3)
  - Incorrect drug administration duration [Unknown]
  - Prescribed overdose [Unknown]
  - Blood bilirubin unconjugated increased [Unknown]
